FAERS Safety Report 12573569 (Version 1)
Quarter: 2016Q3

REPORT INFORMATION
  Report Type: Report from Study
  Country: CA (occurrence: CA)
  Receive Date: 20160720
  Receipt Date: 20160720
  Transmission Date: 20161109
  Serious: Yes (Other)
  Sender: FDA-Public Use
  Company Number: PHHY2015CA170633

PATIENT
  Sex: Female

DRUGS (1)
  1. COSENTYX [Suspect]
     Active Substance: SECUKINUMAB
     Indication: PSORIASIS
     Dosage: 300 MG, ONCE IN A MONTH
     Route: 058
     Dates: start: 20151001

REACTIONS (6)
  - Psoriasis [Unknown]
  - Incorrect dose administered [Unknown]
  - Bipolar disorder [Unknown]
  - Scratch [Unknown]
  - Skin disorder [Unknown]
  - Anger [Recovering/Resolving]

NARRATIVE: CASE EVENT DATE: 2015
